FAERS Safety Report 8327668-1 (Version None)
Quarter: 2012Q2

REPORT INFORMATION
  Report Type: 
  Country: None (occurrence: None)
  Receive Date: 20120430
  Receipt Date: 20120406
  Transmission Date: 20120825
  Serious: Yes (Death, Hospitalization)
  Sender: FDA-Public Use
  Company Number: US-2012-1661

PATIENT
  Age: 64 Year
  Sex: Male

DRUGS (6)
  1. NAVELBINE [Suspect]
     Indication: NON-SMALL CELL LUNG CANCER
     Dosage: 45 MG IV
     Route: 042
     Dates: start: 20111010, end: 20111108
  2. ONDANSETRON [Concomitant]
  3. CETUXIMAB (CETUXIMA, CETUXIMAB) [Suspect]
     Indication: NON-SMALL CELL LUNG CANCER
     Dosage: 750 MG IV
     Route: 042
     Dates: start: 20111010, end: 20111114
  4. LASIX [Concomitant]
  5. CISPLATIN [Suspect]
     Indication: NON-SMALL CELL LUNG CANCER
     Dosage: 150 MG IV
     Route: 042
     Dates: start: 20111010, end: 20111031
  6. DECADRON [Concomitant]

REACTIONS (5)
  - ACTIVATED PARTIAL THROMBOPLASTIN TIME SHORTENED [None]
  - DEEP VEIN THROMBOSIS [None]
  - NEOPLASM PROGRESSION [None]
  - NON-SMALL CELL LUNG CANCER [None]
  - PULMONARY EMBOLISM [None]
